FAERS Safety Report 5669331-1 (Version None)
Quarter: 2008Q1

REPORT INFORMATION
  Report Type: 
  Country: None (occurrence: None)
  Receive Date: 20080317
  Receipt Date: 20080307
  Transmission Date: 20080703
  Serious: Yes (Other)
  Sender: FDA-Public Use
  Company Number: PHBS2006US00740

PATIENT
  Age: 12 Year
  Sex: Female

DRUGS (1)
  1. METHYLPHENIDATE HCL [Suspect]
     Indication: ATTENTION DEFICIT/HYPERACTIVITY DISORDER
     Dosage: 30 MG/DAY

REACTIONS (5)
  - CAPILLARY DISORDER [None]
  - CYANOSIS [None]
  - LIVEDO RETICULARIS [None]
  - PERIPHERAL COLDNESS [None]
  - RAYNAUD'S PHENOMENON [None]
